FAERS Safety Report 8283343-3 (Version None)
Quarter: 2012Q2

REPORT INFORMATION
  Report Type: 
  Country: None (occurrence: None)
  Receive Date: 20120413
  Receipt Date: 20120329
  Transmission Date: 20120825
  Serious: Yes (Other)
  Sender: FDA-Public Use
  Company Number: US-ENDO PHARMACEUTICALS INC.-OPCR20120057

PATIENT
  Sex: Male
  Weight: 69.916 kg

DRUGS (3)
  1. OPANA ER [Suspect]
     Indication: PAIN
     Route: 048
     Dates: start: 20120301
  2. OXYCODONE HCL [Concomitant]
     Indication: PAIN
     Route: 048
  3. OPANA ER [Concomitant]
     Route: 048
     Dates: start: 20070101, end: 20120301

REACTIONS (7)
  - INTENTIONAL DRUG MISUSE [None]
  - WEIGHT DECREASED [None]
  - CONSTIPATION [None]
  - DRUG INEFFECTIVE [None]
  - NAUSEA [None]
  - ABDOMINAL DISCOMFORT [None]
  - VOMITING [None]
